FAERS Safety Report 5841977-7 (Version None)
Quarter: 2008Q3

REPORT INFORMATION
  Report Type: 
  Country: None (occurrence: None)
  Receive Date: 20080812
  Receipt Date: 20060216
  Transmission Date: 20090109
  Serious: Yes (Congenital Anomaly)
  Sender: FDA-Public Use
  Company Number: US-MERCK-0602USA04556B1

PATIENT
  Age: 0 Day
  Sex: Female

DRUGS (2)
  1. SINGULAIR [Suspect]
     Indication: ASTHMA
     Route: 064
     Dates: start: 20050819, end: 20051001
  2. VITAMINS (UNSPECIFIED) [Concomitant]
     Route: 064

REACTIONS (1)
  - HEART DISEASE CONGENITAL [None]
